FAERS Safety Report 18643466 (Version 1)
Quarter: 2020Q4

REPORT INFORMATION
  Report Type: Spontaneous
  Country: CA (occurrence: CA)
  Receive Date: 20201221
  Receipt Date: 20201221
  Transmission Date: 20210114
  Serious: Yes (Other)
  Sender: FDA-Public Use
  Company Number: CA-PFIZER INC-2020498436

PATIENT
  Age: 69 Year
  Sex: Male

DRUGS (2)
  1. RITUXIMAB. [Suspect]
     Active Substance: RITUXIMAB
     Indication: MICROSCOPIC POLYANGIITIS
     Dosage: 500 MG Q 6 MONTHS X 2 YEARS
     Route: 042
     Dates: start: 202001, end: 20200710
  2. RITUXIMAB. [Suspect]
     Active Substance: RITUXIMAB
     Dosage: 500 MG Q 6 MONTHS X 2 YEARS
     Route: 042
     Dates: start: 20200710, end: 20200710

REACTIONS (3)
  - Antineutrophil cytoplasmic antibody positive [Unknown]
  - Neuropathy peripheral [Unknown]
  - Off label use [Unknown]

NARRATIVE: CASE EVENT DATE: 202001
